FAERS Safety Report 10802869 (Version 1)
Quarter: 2015Q1

REPORT INFORMATION
  Report Type: Spontaneous
  Country: US (occurrence: US)
  Receive Date: 20150217
  Receipt Date: 20150217
  Transmission Date: 20150721
  Serious: No
  Sender: FDA-Public Use
  Company Number: US-PFIZER INC-2015055963

PATIENT
  Sex: Female

DRUGS (1)
  1. PIROXICAM. [Suspect]
     Active Substance: PIROXICAM
     Dosage: UNK

REACTIONS (2)
  - Drug hypersensitivity [Unknown]
  - Fluid retention [Unknown]
